FAERS Safety Report 15773868 (Version 2)
Quarter: 2019Q1

REPORT INFORMATION
  Report Type: Spontaneous
  Country: PT (occurrence: PT)
  Receive Date: 20181229
  Receipt Date: 20190122
  Transmission Date: 20190417
  Serious: Yes (Life-Threatening, Hospitalization)
  Sender: FDA-Public Use
  Company Number: PT-AUROBINDO-AUR-APL-2018-063380

PATIENT
  Age: 73 Year
  Sex: Female
  Weight: 60 kg

DRUGS (6)
  1. METFORMIN [Suspect]
     Active Substance: METFORMIN HYDROCHLORIDE
     Indication: DIABETES MELLITUS
     Dosage: 1000 MILLIGRAM, ONCE A DAY
     Route: 048
     Dates: end: 20181122
  2. OLMESARTAN MEDOXOMILO + HIDROCLOROTIAZIDA [Concomitant]
     Indication: HYPERTENSION
     Dosage: 1 DOSAGE FORM, ONCE A DAY, 1000 MG + 50 MG
     Route: 048
  3. ZOMARIST                           /06202201/ [Suspect]
     Active Substance: METFORMIN HYDROCHLORIDE\VILDAGLIPTIN
     Indication: DIABETES MELLITUS
     Dosage: 1 DOSAGE FORM, TWO TIMES A DAY
     Route: 048
  4. SIMVASTATIN. [Concomitant]
     Active Substance: SIMVASTATIN
     Indication: DYSLIPIDAEMIA
     Dosage: 1 DOSAGE FORM, ONCE A DAY
     Route: 065
  5. FLOXEDOL [Concomitant]
     Indication: CORNEAL TRANSPLANT
     Dosage: UNK
     Route: 047
     Dates: start: 201811
  6. DEXAMETHASONE VALERATE [Concomitant]
     Active Substance: DEXAMETHASONE VALERATE
     Indication: CORNEAL TRANSPLANT
     Dosage: UNK
     Route: 065
     Dates: start: 201811

REACTIONS (9)
  - Hyperlactacidaemia [Recovering/Resolving]
  - Acetonaemia [Recovering/Resolving]
  - Blood urea increased [Recovering/Resolving]
  - Abdominal pain [Recovering/Resolving]
  - Blood potassium increased [Recovering/Resolving]
  - Blood creatinine increased [Recovering/Resolving]
  - Blood phosphorus increased [Recovering/Resolving]
  - Urine output decreased [Recovering/Resolving]
  - Vomiting [Recovering/Resolving]

NARRATIVE: CASE EVENT DATE: 20181121
